FAERS Safety Report 21698195 (Version 3)
Quarter: 2023Q1

REPORT INFORMATION
  Report Type: Spontaneous
  Country: JP (occurrence: JP)
  Receive Date: 20221208
  Receipt Date: 20230209
  Transmission Date: 20230417
  Serious: Yes (Life-Threatening, Other)
  Sender: FDA-Public Use
  Company Number: JP-CHUGAI-2022045847AA

PATIENT
  Age: 74 Year
  Sex: Female

DRUGS (3)
  1. VABYSMO [Suspect]
     Active Substance: FARICIMAB-SVOA
     Indication: Neovascular age-related macular degeneration
     Dosage: 0.05 MILLILITER, MOST RECENT DOSE 17/OCT/2022
     Route: 031
     Dates: start: 20220817
  2. BROMFENAC NA [Concomitant]
     Indication: Age-related macular degeneration
     Dosage: UNK, BID
     Route: 047
     Dates: start: 20211211
  3. EYLEA [Concomitant]
     Active Substance: AFLIBERCEPT
     Indication: Vitreous haemorrhage
     Dosage: UNK
     Route: 065

REACTIONS (6)
  - Vitreous haemorrhage [Unknown]
  - Retinal haemorrhage [Unknown]
  - Visual acuity reduced [Unknown]
  - Retinal pigment epithelial tear [Unknown]
  - Eye haemorrhage [Unknown]
  - Drug ineffective [Unknown]

NARRATIVE: CASE EVENT DATE: 20220928
